FAERS Safety Report 15500860 (Version 2)
Quarter: 2018Q4

REPORT INFORMATION
  Report Type: Spontaneous
  Country: CA (occurrence: CA)
  Receive Date: 20181015
  Receipt Date: 20181227
  Transmission Date: 20190205
  Serious: Yes (Other)
  Sender: FDA-Public Use
  Company Number: CA-PFIZER INC-2015403618

PATIENT
  Age: 66 Year
  Sex: Female
  Weight: 65 kg

DRUGS (17)
  1. XELJANZ [Suspect]
     Active Substance: TOFACITINIB CITRATE
     Dosage: HALF A DOSE TWICE A DAY
     Dates: start: 20151120
  2. VAGIFEM [Concomitant]
     Active Substance: ESTRADIOL
     Dosage: 10 UG, 2X/WEEK
     Route: 067
     Dates: start: 20140415
  3. XELJANZ [Suspect]
     Active Substance: TOFACITINIB CITRATE
     Dosage: HALF A DOSE TWICE A DAY
     Dates: end: 2018
  4. JAMP VITAMIN D3 [Concomitant]
     Dosage: 10000 IU, WEEKLY
     Dates: start: 20140428
  5. XELJANZ [Suspect]
     Active Substance: TOFACITINIB CITRATE
     Dosage: 1 TABLET AT BEDTIME
     Dates: start: 201601
  6. ADALAT CC [Concomitant]
     Active Substance: NIFEDIPINE
     Dosage: 20 MG, 1X/DAY (BREAKFAST)
     Dates: start: 20140220
  7. LEDERLE LEUCOVORIN [Concomitant]
     Dosage: 5 MG, WEEKLY
     Dates: start: 20150420
  8. CAL 500 [Concomitant]
     Dosage: 500 MG, 1X/DAY (MORNING)
     Dates: start: 20140220
  9. ACETAMINOPHEN. [Concomitant]
     Active Substance: ACETAMINOPHEN
     Dosage: 1000 MG, 3X/DAY
     Dates: start: 20141013
  10. PRO-QUETIAPINE [Concomitant]
     Dosage: 12.5 MG, 1X/DAY, (HALF OF 25 MG) AT BEDTIME
     Dates: start: 20150720
  11. XELJANZ [Suspect]
     Active Substance: TOFACITINIB CITRATE
     Indication: RHEUMATOID ARTHRITIS
     Dosage: 5 MG, TWICE A DAY
     Route: 048
     Dates: start: 20150617, end: 20151119
  12. PRO-ZOPICLONE [Concomitant]
     Indication: INSOMNIA
     Dosage: 7.5 MG, AS NEEDED, (1 PILL HALF AN HOUR BEFORE GOING TO BED AS NEEDED)
     Dates: start: 20140220
  13. DEXILANT [Concomitant]
     Active Substance: DEXLANSOPRAZOLE
     Dosage: 60 MG, 1X/DAY
     Dates: start: 20140220
  14. PLAQUENIL [Concomitant]
     Active Substance: HYDROXYCHLOROQUINE SULFATE
     Indication: RHEUMATOID ARTHRITIS
     Dosage: UNK
  15. SECTRAL [Concomitant]
     Active Substance: ACEBUTOLOL HYDROCHLORIDE
     Dosage: 100 MG, 2X/DAY (BREAKFAST AND DINNER)
     Dates: start: 20140220
  16. IRBESARTAN HCTZ [Concomitant]
     Active Substance: HYDROCHLOROTHIAZIDE\IRBESARTAN
     Dosage: UNK, 1X/DAY, (BREAKFAST)
     Dates: start: 20140220
  17. ARAVA [Concomitant]
     Active Substance: LEFLUNOMIDE
     Indication: RHEUMATOID ARTHRITIS
     Dosage: UNK

REACTIONS (6)
  - Burning sensation [Recovering/Resolving]
  - Fatigue [Recovering/Resolving]
  - Squamous cell carcinoma [Unknown]
  - Hot flush [Recovering/Resolving]
  - Paraesthesia [Recovering/Resolving]
  - Headache [Recovered/Resolved]

NARRATIVE: CASE EVENT DATE: 201508
